FAERS Safety Report 7060392-4 (Version None)
Quarter: 2010Q4

REPORT INFORMATION
  Report Type: 
  Country: None (occurrence: None)
  Receive Date: 20101025
  Receipt Date: 20101022
  Transmission Date: 20110411
  Serious: No
  Sender: FDA-Public Use
  Company Number: US-B.I. PHARMACEUTICALS,INC./RIDGEFIELD-2010-BP-11890BP

PATIENT
  Age: 69 Year
  Sex: Female

DRUGS (6)
  1. ZANTAC 150 [Suspect]
     Indication: DYSPEPSIA
     Dosage: 300 MG
     Route: 048
     Dates: start: 20101015
  2. RESTASIS [Concomitant]
  3. LENOXIN [Concomitant]
  4. CHLORACON M-10 [Concomitant]
  5. COUMADIN [Concomitant]
  6. FUROSEMIDE [Concomitant]

REACTIONS (1)
  - CONSTIPATION [None]
